FAERS Safety Report 19355227 (Version 1)
Quarter: 2021Q2

REPORT INFORMATION
  Report Type: Spontaneous
  Country: US (occurrence: US)
  Receive Date: 20210601
  Receipt Date: 20210601
  Transmission Date: 20210717
  Serious: No
  Sender: FDA-Public Use
  Company Number: US-STRIDES ARCOLAB LIMITED-2021SP001536

PATIENT
  Age: 7 Decade
  Sex: Male

DRUGS (11)
  1. AMPHOTERICIN B DEOXYCHOLATE [Concomitant]
     Active Substance: AMPHOTERICIN B
     Indication: HISTOPLASMOSIS
     Dosage: UNK
     Route: 065
  2. TAZOBACTAM [Concomitant]
     Active Substance: TAZOBACTAM
     Indication: HISTOPLASMOSIS
     Dosage: UNK
     Route: 065
  3. COTRIMOXAZOLE [Concomitant]
     Active Substance: SULFAMETHOXAZOLE\TRIMETHOPRIM
     Indication: CUTANEOUS NOCARDIOSIS
     Dosage: UNK
     Route: 065
  4. VANCOMYCIN [Suspect]
     Active Substance: VANCOMYCIN
     Indication: HISTOPLASMOSIS
     Dosage: UNK
     Route: 065
  5. AMPHOTERICIN B DEOXYCHOLATE [Concomitant]
     Active Substance: AMPHOTERICIN B
     Indication: SEPTIC SHOCK
  6. VANCOMYCIN [Suspect]
     Active Substance: VANCOMYCIN
     Indication: SEPTIC SHOCK
  7. PIPERACILLIN. [Concomitant]
     Active Substance: PIPERACILLIN SODIUM
     Indication: HISTOPLASMOSIS
     Dosage: UNK
     Route: 065
  8. PIPERACILLIN. [Concomitant]
     Active Substance: PIPERACILLIN SODIUM
     Indication: SEPTIC SHOCK
  9. INFLIXIMAB [Concomitant]
     Active Substance: INFLIXIMAB
     Dosage: 3 MILLIGRAM/KILOGRAM
     Route: 065
  10. TAZOBACTAM [Concomitant]
     Active Substance: TAZOBACTAM
     Indication: SEPTIC SHOCK
  11. INFLIXIMAB [Concomitant]
     Active Substance: INFLIXIMAB
     Indication: CARDIAC SARCOIDOSIS
     Dosage: UNK
     Route: 065

REACTIONS (1)
  - Off label use [Unknown]
